FAERS Safety Report 6400104-8 (Version None)
Quarter: 2009Q4

REPORT INFORMATION
  Report Type: 
  Country: None (occurrence: None)
  Receive Date: 20091014
  Receipt Date: 20091007
  Transmission Date: 20100525
  Serious: Yes (Other)
  Sender: FDA-Public Use
  Company Number: B0597751A

PATIENT
  Age: 73 Year
  Sex: Male

DRUGS (3)
  1. CLENIL [Suspect]
     Indication: ASTHMA
     Dosage: 400MCG PER DAY
     Route: 055
     Dates: start: 20090801
  2. TERBUTALINE SULFATE [Concomitant]
     Indication: ASTHMA
     Dosage: 5.5MG AS REQUIRED
     Route: 055
  3. CANDESARTAN CILEXETIL [Concomitant]

REACTIONS (3)
  - DRUG INEFFECTIVE [None]
  - DYSPNOEA [None]
  - WHEEZING [None]
